FAERS Safety Report 25786261 (Version 1)
Quarter: 2025Q3

REPORT INFORMATION
  Report Type: Spontaneous
  Country: US (occurrence: None)
  Receive Date: 20250909
  Receipt Date: 20250909
  Transmission Date: 20251021
  Serious: Yes (Other)
  Sender: FDA-CTU
  Company Number: None

PATIENT
  Age: 35 Year
  Sex: Female
  Weight: 78.75 kg

DRUGS (4)
  1. NUVARING [Suspect]
     Active Substance: ETHINYL ESTRADIOL\ETONOGESTREL
     Indication: Hormone level abnormal
     Dates: start: 20250904, end: 20250905
  2. ADDERALL [Concomitant]
     Active Substance: AMPHETAMINE ASPARTATE\AMPHETAMINE SULFATE\DEXTROAMPHETAMINE SACCHARATE\DEXTROAMPHETAMINE SULFATE
  3. Val Cyclovir [Concomitant]
  4. Beef organs [Concomitant]

REACTIONS (3)
  - Suicidal behaviour [None]
  - Medical device site pain [None]
  - Genital burning sensation [None]

NARRATIVE: CASE EVENT DATE: 20250904
